FAERS Safety Report 4552770-X (Version None)
Quarter: 2005Q1

REPORT INFORMATION
  Report Type: 
  Country: None (occurrence: None)
  Receive Date: 20050111
  Receipt Date: 20050111
  Transmission Date: 20050727
  Serious: No
  Sender: FDA-Public Use
  Company Number: None

PATIENT
  Age: 49 Year
  Sex: Female
  Weight: 86.1834 kg

DRUGS (4)
  1. OMEPRAZOLE [Suspect]
     Dosage: 20MG IN THE MORNING   START OF GENERIC ON 12-10-04
     Dates: start: 20041210
  2. CELEBREX [Concomitant]
  3. SINGULAIR [Concomitant]
  4. ALLEGRA [Concomitant]

REACTIONS (3)
  - DRUG EFFECT DECREASED [None]
  - MEDICATION ERROR [None]
  - PHARMACEUTICAL PRODUCT COMPLAINT [None]
